FAERS Safety Report 7216540-6 (Version None)
Quarter: 2011Q1

REPORT INFORMATION
  Report Type: 
  Country: None (occurrence: None)
  Receive Date: 20110109
  Receipt Date: 20110105
  Transmission Date: 20110831
  Serious: Yes (Other)
  Sender: FDA-Public Use
  Company Number: AT-BRISTOL-MYERS SQUIBB COMPANY-15473937

PATIENT

DRUGS (1)
  1. ORENCIA [Suspect]

REACTIONS (1)
  - LEUKOCYTOCLASTIC VASCULITIS [None]
